FAERS Safety Report 15594211 (Version 2)
Quarter: 2018Q4

REPORT INFORMATION
  Report Type: Spontaneous
  Country: IE (occurrence: IE)
  Receive Date: 20181107
  Receipt Date: 20181113
  Transmission Date: 20190205
  Serious: Yes (Death, Other)
  Sender: FDA-Public Use
  Company Number: PHHY2018IE148851

PATIENT
  Age: 12 Year
  Sex: Male
  Weight: 42.2 kg

DRUGS (4)
  1. TEGRETOL [Suspect]
     Active Substance: CARBAMAZEPINE
     Dosage: 1200 MG, QD
     Route: 065
     Dates: start: 20160813, end: 20160813
  2. TEGRETOL [Suspect]
     Active Substance: CARBAMAZEPINE
     Dosage: 400 MG, BID
     Route: 065
     Dates: start: 20160422
  3. TEGRETOL [Suspect]
     Active Substance: CARBAMAZEPINE
     Dosage: 600 MG, BID
     Route: 065
     Dates: start: 20160714
  4. TEGRETOL [Suspect]
     Active Substance: CARBAMAZEPINE
     Indication: EPILEPSY
     Dosage: 300 MG, BID
     Route: 065

REACTIONS (4)
  - Drowning [Fatal]
  - Arrhythmia [Fatal]
  - Ill-defined disorder [Unknown]
  - Seizure [Unknown]

NARRATIVE: CASE EVENT DATE: 20160818
